FAERS Safety Report 6958378-0 (Version None)
Quarter: 2010Q3

REPORT INFORMATION
  Report Type: 
  Country: None (occurrence: None)
  Receive Date: 20100831
  Receipt Date: 20091030
  Transmission Date: 20110219
  Serious: Yes (Death)
  Sender: FDA-Public Use
  Company Number: JP-ROCHE-666720

PATIENT
  Age: 54 Year
  Sex: Male

DRUGS (7)
  1. CELLCEPT [Suspect]
     Indication: CHRONIC GRAFT VERSUS HOST DISEASE
     Dosage: INTIAL THERAPY
     Route: 048
  2. CELLCEPT [Suspect]
     Route: 048
  3. CYCLOSPORINE [Concomitant]
     Route: 048
  4. TACROLIMUS [Concomitant]
     Route: 048
  5. METHYLPREDNISOLONE SODIUM SUCCINATE [Concomitant]
     Dosage: ROUTE INTRAVENOUS
     Route: 041
  6. METHYLPREDNISOLONE SODIUM SUCCINATE [Concomitant]
     Route: 041
  7. MEDROL [Concomitant]
     Route: 048

REACTIONS (1)
  - MYCOBACTERIUM KANSASII PNEUMONIA [None]
